FAERS Safety Report 20107454 (Version 2)
Quarter: 2021Q4

REPORT INFORMATION
  Report Type: Report from Study
  Country: CA (occurrence: None)
  Receive Date: 20211124
  Receipt Date: 20211216
  Transmission Date: 20220303
  Serious: No
  Sender: FDA-Public Use
  Company Number: CA-Merck Healthcare KGaA-9275467

PATIENT
  Age: 42 Year
  Sex: Female

DRUGS (2)
  1. MAVENCLAD [Suspect]
     Active Substance: CLADRIBINE
     Indication: Multiple sclerosis
     Dosage: WEEK ONE THERAPY: TWO TABLETS ON DAYS ONE TO FOUR AND ONE TABLET ON DAY FIVE
     Route: 048
     Dates: start: 20211023, end: 20211028
  2. MAVENCLAD [Suspect]
     Active Substance: CLADRIBINE
     Dosage: WEEK TWO THERAPY: TWO TABLETS ON DAYS ONE TO THREE AND ONE TABLET ON DAYS FOUR AND FIVE
     Route: 048
     Dates: start: 2021

REACTIONS (10)
  - Diarrhoea [Not Recovered/Not Resolved]
  - Decreased appetite [Not Recovered/Not Resolved]
  - Groin pain [Unknown]
  - Pain in extremity [Unknown]
  - Vulvovaginal pruritus [Unknown]
  - Feeling abnormal [Unknown]
  - Abdominal discomfort [Recovering/Resolving]
  - Nausea [Not Recovered/Not Resolved]
  - Fatigue [Not Recovered/Not Resolved]
  - Headache [Unknown]

NARRATIVE: CASE EVENT DATE: 20210101
